FAERS Safety Report 8702425 (Version 4)
Quarter: 2014Q2

REPORT INFORMATION
  Report Type: Report from Study
  Country: FR (occurrence: FR)
  Receive Date: 20120803
  Receipt Date: 20140501
  Transmission Date: 20141212
  Serious: Yes (Hospitalization)
  Sender: FDA-Public Use
  Company Number: FR-EISAI INC-E7389-02739-CLI-FR

PATIENT
  Age: 81 Year
  Sex: Female
  Weight: 57 kg

DRUGS (2)
  1. ERIBULIN [Suspect]
     Indication: BREAST CANCER
     Route: 041
     Dates: start: 20111227, end: 20120228
  2. SOLUPRED [Concomitant]
     Indication: PROPHYLAXIS
     Route: 048

REACTIONS (2)
  - Bronchopneumonia [Recovered/Resolved]
  - Neck pain [Recovered/Resolved]
